FAERS Safety Report 20451103 (Version 1)
Quarter: 2022Q1

REPORT INFORMATION
  Report Type: Spontaneous
  Country: US (occurrence: US)
  Receive Date: 20220209
  Receipt Date: 20220209
  Transmission Date: 20220423
  Serious: Yes (Other)
  Sender: FDA-Public Use
  Company Number: US-ALLERGAN-2204786US

PATIENT
  Sex: Female

DRUGS (6)
  1. AVYCAZ [Suspect]
     Active Substance: AVIBACTAM SODIUM\CEFTAZIDIME
     Indication: Chronic obstructive pulmonary disease
     Dosage: NLY HAD TO USE IT OCCASIONALLY
     Dates: start: 2021, end: 2021
  2. GABAPENTIN [Concomitant]
     Active Substance: GABAPENTIN
     Indication: Neuralgia
     Dosage: 300 MG THREE TIMES A DAY
  3. WELLBUTRIN [Concomitant]
     Active Substance: BUPROPION HYDROCHLORIDE
     Indication: Major depression
     Dosage: 300 MG ONE TIME A DAY
  4. XANAX [Concomitant]
     Active Substance: ALPRAZOLAM
     Indication: Anxiety
     Dosage: 1 MG TWO TO THREE TIMES A DAY AS NEEDED
  5. AMLODIPINE [Concomitant]
     Active Substance: AMLODIPINE BESYLATE
     Indication: Hypertension
     Dosage: 5MG DAILY
  6. ERGOCALCIFEROL [Concomitant]
     Active Substance: ERGOCALCIFEROL
     Indication: Bone disorder
     Dosage: 50,000 UI/1.25 MG

REACTIONS (7)
  - Cataract [Recovered/Resolved]
  - Glaucoma [Recovered/Resolved]
  - Spinal operation [Recovering/Resolving]
  - Intervertebral disc disorder [Recovering/Resolving]
  - Fall [Recovered/Resolved]
  - Sjogren^s syndrome [Not Recovered/Not Resolved]
  - Off label use [Unknown]

NARRATIVE: CASE EVENT DATE: 20210701
